FAERS Safety Report 11529976 (Version 2)
Quarter: 2019Q2

REPORT INFORMATION
  Report Type: Spontaneous
  Country: CA (occurrence: CA)
  Receive Date: 20150921
  Receipt Date: 20190627
  Transmission Date: 20190711
  Serious: Yes (Hospitalization)
  Sender: FDA-Public Use
  Company Number: CA-TEVA-593873ACC

PATIENT
  Age: 75 Year
  Sex: Male
  Weight: 91 kg

DRUGS (13)
  1. ATORVASTATIN CALCIUM. [Concomitant]
     Active Substance: ATORVASTATIN CALCIUM
  2. CYMBALTA [Concomitant]
     Active Substance: DULOXETINE HYDROCHLORIDE
  3. GABAPENTIN. [Concomitant]
     Active Substance: GABAPENTIN
  4. RAMIPRIL. [Concomitant]
     Active Substance: RAMIPRIL
  5. FUROSEMIDE. [Concomitant]
     Active Substance: FUROSEMIDE
  6. ASA [Concomitant]
     Active Substance: ASPIRIN
  7. LANSOPRAZOLE. [Concomitant]
     Active Substance: LANSOPRAZOLE
  8. MYLAN-NITRO PATCH [Concomitant]
     Active Substance: NITROGLYCERIN
  9. SPIRONOLACTONE. [Concomitant]
     Active Substance: SPIRONOLACTONE
  10. AMIODARONE [Suspect]
     Active Substance: AMIODARONE
     Indication: VENTRICULAR TACHYCARDIA
     Dosage: 200 MILLIGRAM DAILY;
     Route: 065
  11. ALLOPURINOL. [Concomitant]
     Active Substance: ALLOPURINOL
  12. BISOPROLOL [Concomitant]
     Active Substance: BISOPROLOL
  13. WARFARIN [Concomitant]
     Active Substance: WARFARIN

REACTIONS (6)
  - Blood creatinine increased [Recovered/Resolved]
  - Interstitial lung disease [Recovered/Resolved]
  - Orthostatic hypertension [Recovered/Resolved]
  - Presyncope [Recovered/Resolved]
  - Dyspnoea [Recovered/Resolved]
  - Acute kidney injury [Recovered/Resolved]
